FAERS Safety Report 17855260 (Version 1)
Quarter: 2020Q2

REPORT INFORMATION
  Report Type: Spontaneous
  Country: US (occurrence: US)
  Receive Date: 20200603
  Receipt Date: 20200603
  Transmission Date: 20200714
  Serious: No
  Sender: FDA-Public Use
  Company Number: None

PATIENT
  Sex: Female

DRUGS (2)
  1. AMBRISENTAN 10MG ACTAVIS PHARMA [Suspect]
     Active Substance: AMBRISENTAN
     Indication: PULMONARY ARTERIAL HYPERTENSION
     Route: 048
     Dates: start: 20200427
  2. ALYQ [Concomitant]
     Active Substance: TADALAFIL

REACTIONS (4)
  - Condition aggravated [None]
  - Product substitution issue [None]
  - Drug ineffective [None]
  - Dyspnoea [None]
